FAERS Safety Report 9859059 (Version 2)
Quarter: 2014Q1

REPORT INFORMATION
  Report Type: Spontaneous
  Country: US (occurrence: None)
  Receive Date: 20140129
  Receipt Date: 20140206
  Transmission Date: 20141002
  Serious: Yes (Other)
  Sender: FDA-Public Use
  Company Number: AXC-2014-000059

PATIENT
  Age: 69 Year
  Sex: Female

DRUGS (13)
  1. URSO [Suspect]
     Indication: BILIARY CIRRHOSIS PRIMARY
     Route: 048
  2. URSODEOXYCHOLIC ACID [Suspect]
     Indication: BILIARY CIRRHOSIS PRIMARY
     Route: 048
  3. URSODIOL [Suspect]
     Indication: BILIARY CIRRHOSIS PRIMARY
     Route: 048
  4. VICODIN [Suspect]
     Indication: PELVIC FRACTURE
  5. DILTIAZEM (DILTIAZEM) [Concomitant]
  6. HYDROCHLOROTHIAZIDE (HYDROCHLOROTHIAZIDE) [Concomitant]
  7. XANAX (ALPRAZOLAM) [Concomitant]
  8. CELEXA (CITALOPRAM HYDROBROMIDE) [Concomitant]
  9. VITAMIN D (COLECALICIFEROL) [Concomitant]
  10. CALCIUM (CALCIUM) [Concomitant]
  11. POTASSIUM (POTASSIUM) [Concomitant]
  12. FISH OIL (FISH OIL) [Concomitant]
  13. PREDNISONE (PREDNISONE) [Concomitant]

REACTIONS (14)
  - Accident [None]
  - Abdominal pain upper [None]
  - Influenza like illness [None]
  - Pruritus [None]
  - Constipation [None]
  - Gastrointestinal pain [None]
  - Abdominal pain upper [None]
  - Influenza like illness [None]
  - Pruritus [None]
  - Constipation [None]
  - Pelvic fracture [None]
  - Polymyalgia rheumatica [None]
  - Breast cancer [None]
  - Cataract [None]
